FAERS Safety Report 16610288 (Version 1)
Quarter: 2019Q3

REPORT INFORMATION
  Report Type: Spontaneous
  Country: IT (occurrence: IT)
  Receive Date: 20190722
  Receipt Date: 20190722
  Transmission Date: 20191004
  Serious: Yes (Other)
  Sender: FDA-Public Use
  Company Number: IT-ALLERGAN-1929621US

PATIENT
  Sex: Female

DRUGS (2)
  1. SALINE SOLUTION [Concomitant]
     Active Substance: SODIUM CHLORIDE
     Dosage: UNK
     Route: 058
  2. PROGESTERONE UNK [Suspect]
     Active Substance: PROGESTERONE
     Indication: HABITUAL ABORTION
     Dosage: UNK
     Route: 067

REACTIONS (3)
  - Off label use [Unknown]
  - Pregnancy [Unknown]
  - Abortion spontaneous [Unknown]
